FAERS Safety Report 4835460-5 (Version None)
Quarter: 2005Q4

REPORT INFORMATION
  Report Type: 
  Country: None (occurrence: None)
  Receive Date: 20051122
  Receipt Date: 20051122
  Transmission Date: 20060501
  Serious: Yes (Other)
  Sender: FDA-Public Use
  Company Number: None

PATIENT
  Sex: Female
  Weight: 69.1282 kg

DRUGS (4)
  1. TRAMADOL  50 MG [Suspect]
     Indication: BACK PAIN
     Dosage: 1-2 UP TO 4 TIMES/DAY PO
     Route: 048
     Dates: start: 20050928, end: 20051121
  2. TRAMADOL  50 MG [Suspect]
     Indication: INTERVERTEBRAL DISC DISORDER
     Dosage: 1-2 UP TO 4 TIMES/DAY PO
     Route: 048
     Dates: start: 20050928, end: 20051121
  3. TRAMADOL  50 MG [Suspect]
     Indication: LUMBAR RADICULOPATHY
     Dosage: 1-2 UP TO 4 TIMES/DAY PO
     Route: 048
     Dates: start: 20050928, end: 20051121
  4. TRAMADOL  50 MG [Suspect]
     Indication: MYOFASCIAL PAIN SYNDROME
     Dosage: 1-2 UP TO 4 TIMES/DAY PO
     Route: 048
     Dates: start: 20050928, end: 20051121

REACTIONS (3)
  - ANXIETY [None]
  - INCORRECT DOSE ADMINISTERED [None]
  - TREATMENT NONCOMPLIANCE [None]
